FAERS Safety Report 9645469 (Version 3)
Quarter: 2014Q1

REPORT INFORMATION
  Report Type: Spontaneous
  Country: GB (occurrence: GB)
  Receive Date: 20131025
  Receipt Date: 20140205
  Transmission Date: 20141002
  Serious: Yes (Life-Threatening, Hospitalization, Other)
  Sender: FDA-Public Use
  Company Number: GB-PFIZER INC-2013302898

PATIENT
  Age: 65 Year
  Sex: Female

DRUGS (11)
  1. CELECOXIB [Suspect]
     Indication: ANALGESIC THERAPY
     Dosage: 200 MG, UNK
     Route: 048
     Dates: end: 20120804
  2. METFORMIN HCL [Suspect]
     Indication: TYPE 2 DIABETES MELLITUS
     Dosage: 500 MG, UNK
     Route: 048
     Dates: end: 20120804
  3. CANDESARTAN [Suspect]
     Indication: HYPERTENSION
     Dosage: 16 MG, 1X/DAY
     Route: 048
     Dates: end: 20120804
  4. FUROSEMIDE [Suspect]
     Indication: HYPERTENSION
     Dosage: 40MG
     Route: 048
     Dates: end: 20120804
  5. VITAMINS NOS [Concomitant]
     Dosage: 1 DF, DAILY
  6. MIRTAZAPINE [Concomitant]
     Dosage: 15 MG, 1X/DAY
  7. VENLAFAXINE [Concomitant]
     Dosage: 150 MG, 1X/DAY
  8. CLONAZEPAM [Concomitant]
     Dosage: 150 UG, 1X/DAY
  9. RANITIDINE [Concomitant]
     Dosage: 150 MG, 2X/DAY
  10. GABAPENTIN [Concomitant]
     Dosage: 300 MG, UNK
  11. SITAGLIPTIN [Concomitant]
     Dosage: UNK

REACTIONS (6)
  - Renal failure acute [Recovered/Resolved]
  - Dehydration [Recovered/Resolved]
  - Condition aggravated [Recovered/Resolved]
  - Malaise [Unknown]
  - Diarrhoea [Unknown]
  - Vomiting [Unknown]
